FAERS Safety Report 10130812 (Version 1)
Quarter: 2014Q2

REPORT INFORMATION
  Report Type: Spontaneous
  Country: US (occurrence: None)
  Receive Date: 20140425
  Receipt Date: 20140425
  Transmission Date: 20141212
  Serious: Yes (Life-Threatening, Other)
  Sender: FDA-Public Use
  Company Number: None

PATIENT
  Age: 35 Year
  Sex: Male
  Weight: 72.58 kg

DRUGS (1)
  1. CREST PRO-HEALTH [Suspect]
     Dosage: LOT NO.: 325741?EXPIRATION DATE: 08/01/2015?SERIAL NO.: 92299196

REACTIONS (1)
  - Oral mucosal exfoliation [None]
